FAERS Safety Report 25682200 (Version 1)
Quarter: 2025Q3

REPORT INFORMATION
  Report Type: Spontaneous
  Country: US (occurrence: None)
  Receive Date: 20250814
  Receipt Date: 20250814
  Transmission Date: 20251021
  Serious: Yes (Hospitalization)
  Sender: FDA-CTU
  Company Number: None

PATIENT
  Sex: Female

DRUGS (5)
  1. NUCALA [Suspect]
     Active Substance: MEPOLIZUMAB
     Indication: Polyarteritis nodosa
     Dosage: OTHER QUANTITY : 3 PENS (300 MG);?FREQUENCY : MONTHLY;?
     Route: 058
     Dates: start: 20230719
  2. NUCALA [Suspect]
     Active Substance: MEPOLIZUMAB
     Indication: Eosinophilic granulomatosis with polyangiitis
  3. BOTOX [Concomitant]
     Active Substance: ONABOTULINUMTOXINA
  4. dexameth pho [Concomitant]
  5. ketoroloac [Concomitant]

REACTIONS (5)
  - Drug ineffective [None]
  - Pyrexia [None]
  - Condition aggravated [None]
  - Polyarteritis nodosa [None]
  - Quality of life decreased [None]
